FAERS Safety Report 6642997-5 (Version None)
Quarter: 2010Q1

REPORT INFORMATION
  Report Type: 
  Country: None (occurrence: None)
  Receive Date: 20100319
  Receipt Date: 20100318
  Transmission Date: 20100710
  Serious: Yes (Death, Hospitalization, Other)
  Sender: FDA-Public Use
  Company Number: A0850907A

PATIENT
  Age: 56 Year
  Sex: Female
  Weight: 114.2 kg

DRUGS (19)
  1. MELPHALAN HYDROCHLORIDE [Suspect]
     Indication: MULTIPLE MYELOMA
     Dosage: 20MG PER DAY
     Route: 048
     Dates: start: 20081215, end: 20081218
  2. STUDY MEDICATION [Suspect]
     Indication: MULTIPLE MYELOMA
     Dosage: 20MG CYCLIC
     Route: 048
     Dates: start: 20081111, end: 20081201
  3. SYNTHROID [Concomitant]
     Dates: start: 20070821
  4. FLUOXETINE [Concomitant]
     Dates: start: 20070821
  5. GABAPENTIN [Concomitant]
     Dates: start: 20070821
  6. BUMETANIDE [Concomitant]
     Dates: start: 20081110
  7. POTASSIUM CHLORIDE [Concomitant]
     Dates: start: 20081110
  8. QVAR 40 [Concomitant]
     Dates: start: 20081110
  9. ALBUTEROL [Concomitant]
     Dates: start: 20081110
  10. NASONEX [Concomitant]
     Dates: start: 20081110
  11. CALCIUM WITH VITAMIN D [Concomitant]
     Dates: start: 20081110
  12. VITAMIN D [Concomitant]
     Dates: start: 20081110
  13. VITAMIN E [Concomitant]
     Dates: start: 20081110
  14. NORMAL HUMAN IMMUNOGLOBULIN [Concomitant]
     Dates: start: 20080201
  15. TYLENOL-500 [Concomitant]
     Dates: start: 20080201
  16. BENADRYL [Concomitant]
     Dates: start: 20080201
  17. ARANESP [Concomitant]
     Dates: start: 20081114, end: 20081201
  18. PROTONIX [Concomitant]
     Dates: start: 20081110
  19. ZOFRAN [Concomitant]
     Dates: start: 20081117, end: 20081211

REACTIONS (7)
  - CLOSTRIDIAL INFECTION [None]
  - EPISTAXIS [None]
  - NEUTROPHIL COUNT DECREASED [None]
  - OEDEMA PERIPHERAL [None]
  - PYREXIA [None]
  - RENAL FAILURE [None]
  - THROMBOCYTOPENIA [None]
